FAERS Safety Report 10215683 (Version 1)
Quarter: 2014Q2

REPORT INFORMATION
  Report Type: Spontaneous
  Country: DE (occurrence: None)
  Receive Date: 20140602
  Receipt Date: 20140602
  Transmission Date: 20141212
  Serious: Yes (Hospitalization, Congenital Anomaly, Other)
  Sender: FDA-Public Use
  Company Number: SYM-2014-21409

PATIENT
  Age: 0 Day
  Sex: Female

DRUGS (5)
  1. ELONTRIL (BUPROPION HYDROCHLORIDE) (PROLONGED-RELEASE TABLET) (BUPROPION HYDROCHLORIDE) [Suspect]
     Indication: DEPRESSION
     Dosage: 300MG, 1 IN 1D TRANSPLACENTAL
     Route: 064
     Dates: start: 20121220, end: 20130917
  2. VENLAFAXINE (VENLAFAXINE) [Suspect]
     Indication: DEPRESSION
     Dosage: 225MG, 1 IN 1 D, TRANSPLACENTAL
     Route: 064
     Dates: start: 20121220, end: 20130917
  3. PRILOCAINE [Suspect]
     Indication: PUDENDAL BLOCK
     Route: 064
     Dates: start: 20130917, end: 20130917
  4. THYROXIN (LEVOTHYROXINE SODIUM) (LEVOTHYROXINE SODIUM) [Concomitant]
  5. VOMEX A (DIMENHYDRINATE) (DIMENHYDRINATE) [Concomitant]

REACTIONS (13)
  - Neonatal asphyxia [None]
  - Foetal exposure during pregnancy [None]
  - Hypothermia [None]
  - Hypotension [None]
  - Patent ductus arteriosus [None]
  - Hypoxic-ischaemic encephalopathy [None]
  - Convulsion [None]
  - Atrial septal defect [None]
  - Feeding disorder neonatal [None]
  - Neonatal respiratory distress syndrome [None]
  - Pulmonary hypertension [None]
  - Drug withdrawal syndrome neonatal [None]
  - Maternal drugs affecting foetus [None]
